FAERS Safety Report 11363945 (Version 2)
Quarter: 2015Q3

REPORT INFORMATION
  Report Type: Report from Study
  Country: CN (occurrence: CN)
  Receive Date: 20150811
  Receipt Date: 20150914
  Transmission Date: 20151125
  Serious: Yes (Hospitalization)
  Sender: FDA-Public Use
  Company Number: CN-ASTELLAS-2015US028134

PATIENT
  Age: 34 Year
  Sex: Male
  Weight: 58 kg

DRUGS (8)
  1. NICARDIPINE [Suspect]
     Active Substance: NICARDIPINE
     Indication: BLOOD PRESSURE MANAGEMENT
     Dosage: 30 MG DAILY, THRICE DAILY
     Route: 048
     Dates: start: 20150725, end: 20150729
  2. ATG-FRESENIUS [Suspect]
     Active Substance: LAPINE T-LYMPHOCYTE IMMUNE GLOBULIN
     Indication: IMMUNOSUPPRESSION
     Route: 042
     Dates: start: 20150704, end: 20150708
  3. THYMOGLOBULINE [Suspect]
     Active Substance: LAPINE T-LYMPHOCYTE IMMUNE GLOBULIN
     Indication: IMMUNOSUPPRESSION
     Route: 042
     Dates: start: 20150719, end: 20150720
  4. MYCOPHENOLATE SODIUM [Concomitant]
     Active Substance: MYCOPHENOLATE SODIUM
     Indication: PROPHYLAXIS AGAINST TRANSPLANT REJECTION
     Dosage: 1080 MG DAILY, TWICE DAILY
     Route: 048
     Dates: start: 20150704
  5. TACROLIMUS. [Suspect]
     Active Substance: TACROLIMUS
     Indication: PROPHYLAXIS AGAINST TRANSPLANT REJECTION
     Dosage: 6 MG DAILY, TWICE DAILY
     Route: 048
     Dates: start: 20150704
  6. NICARDIPINE [Suspect]
     Active Substance: NICARDIPINE
     Indication: PROPHYLAXIS AGAINST TRANSPLANT REJECTION
  7. THYMOGLOBULINE [Suspect]
     Active Substance: LAPINE T-LYMPHOCYTE IMMUNE GLOBULIN
     Indication: PROPHYLAXIS AGAINST TRANSPLANT REJECTION
     Route: 042
     Dates: start: 20150716, end: 20150718
  8. CEFOPERAZONE SODIUM AND SULBACTAM SODIUM [Concomitant]
     Active Substance: CEFOPERAZONE SODIUM\SULBACTAM SODIUM
     Indication: INFECTION PROPHYLAXIS
     Dosage: 6 G DAILY, TWICE DAILY
     Route: 042
     Dates: start: 20150704, end: 20150729

REACTIONS (1)
  - Renal vessel disorder [Recovered/Resolved]

NARRATIVE: CASE EVENT DATE: 20150716
